FAERS Safety Report 9773905 (Version 2)
Quarter: 2014Q2

REPORT INFORMATION
  Report Type: Spontaneous
  Country: US (occurrence: US)
  Receive Date: 20131220
  Receipt Date: 20140423
  Transmission Date: 20141212
  Serious: No
  Sender: FDA-Public Use
  Company Number: US-009507513-1312USA008466

PATIENT
  Age: 20 Year
  Sex: Female
  Weight: 104.31 kg

DRUGS (1)
  1. IMPLANON [Suspect]
     Indication: CONTRACEPTION
     Dosage: 1 ROD, IN THE SULCUS BICIPITALIS MEDIALIS
     Route: 059
     Dates: start: 20130307

REACTIONS (2)
  - Unintended pregnancy [Unknown]
  - Medical device complication [Unknown]
